FAERS Safety Report 21521528 (Version 2)
Quarter: 2022Q4

REPORT INFORMATION
  Report Type: Spontaneous
  Country: US (occurrence: US)
  Receive Date: 20221028
  Receipt Date: 20221124
  Transmission Date: 20230112
  Serious: Yes (Hospitalization, Other)
  Sender: FDA-Public Use
  Company Number: US-BRISTOL-MYERS SQUIBB COMPANY-2022-126011

PATIENT
  Age: 72 Year
  Sex: Male

DRUGS (1)
  1. POMALYST [Suspect]
     Active Substance: POMALIDOMIDE
     Indication: Chronic kidney disease
     Dosage: TAKE 1 CAPSULE BY MOUTH EVERY DAY FOR 21 DAYS ON THEN 7 DAYS OFF EVERY 28 DAYS
     Route: 048
     Dates: start: 20211027

REACTIONS (6)
  - Asthenia [Unknown]
  - Procedural pain [Unknown]
  - Treatment noncompliance [Unknown]
  - Lung disorder [Unknown]
  - Cardiac disorder [Unknown]
  - Off label use [Unknown]
